FAERS Safety Report 15893334 (Version 6)
Quarter: 2019Q3

REPORT INFORMATION
  Report Type: Spontaneous
  Country: CA (occurrence: CA)
  Receive Date: 20190130
  Receipt Date: 20190922
  Transmission Date: 20191004
  Serious: Yes (Other)
  Sender: FDA-Public Use
  Company Number: CA-CELLTRION INC.-2018CA024980

PATIENT

DRUGS (21)
  1. INFLECTRA [Suspect]
     Active Substance: INFLIXIMAB-DYYB
     Indication: COLITIS ULCERATIVE
     Dosage: 325 MG, EVERY 0-1-5 WEEKS
     Route: 042
     Dates: start: 20181212, end: 20190121
  2. INFLECTRA [Suspect]
     Active Substance: INFLIXIMAB-DYYB
     Dosage: 400 MG, EVERY 4 WEEKS
     Route: 042
     Dates: start: 20190223, end: 20190422
  3. FLAGYL [Concomitant]
     Active Substance: METRONIDAZOLE\METRONIDAZOLE HYDROCHLORIDE
     Dosage: 500 MG, 2X/DAY (Q.12 HOUR)
     Route: 042
  4. PREDNISONE. [Concomitant]
     Active Substance: PREDNISONE
     Dosage: 40MG DAILY THEN TAPERING DOWN
     Route: 048
  5. PANTOPRAZOLE [Concomitant]
     Active Substance: PANTOPRAZOLE
     Dosage: 40 MG, DAILY
     Route: 042
     Dates: start: 20181207, end: 20181214
  6. AZATHIOPRINE. [Concomitant]
     Active Substance: AZATHIOPRINE
     Indication: COLITIS
     Dosage: 50 MG, 1X/DAY, THEN INCREASING DOSE TO 100MG OD IN TWO WEEKS
     Route: 048
  7. INFLECTRA [Suspect]
     Active Substance: INFLIXIMAB-DYYB
     Dosage: 400 MG, EVERY 8 WEEKS
     Route: 042
     Dates: start: 20190517
  8. INFLECTRA [Suspect]
     Active Substance: INFLIXIMAB-DYYB
     Dosage: 400 MG, EVERY 4 WEEKS
     Route: 042
     Dates: start: 20190715
  9. INFLECTRA [Suspect]
     Active Substance: INFLIXIMAB-DYYB
     Dosage: 325 MG, EVERY 0-1-5 WEEKS
     Route: 042
     Dates: start: 20190121
  10. PREDNISONE. [Concomitant]
     Active Substance: PREDNISONE
     Dosage: 20 MG, 1X/DAY
     Route: 048
  11. BENADRYL [Concomitant]
     Active Substance: DIPHENHYDRAMINE HYDROCHLORIDE
     Indication: PREMEDICATION
     Dosage: 50 MG, UNK
  12. 5-ASA [Concomitant]
     Active Substance: MESALAMINE
     Dosage: 2 DF (TABS), 3X/DAY
     Dates: end: 20190114
  13. HYDROCORTISONE. [Concomitant]
     Active Substance: HYDROCORTISONE
     Dosage: 100 MG, EVERY 6 HOURS
     Route: 042
     Dates: start: 20181209
  14. HYOSCINE BUTYLBROMIDE [Concomitant]
     Active Substance: BUTYLSCOPOLAMINE BROMIDE
     Dosage: 10 MG/ 0.5 ML, 3X/DAY UNTIL 08JUN2019
     Route: 048
     Dates: start: 20181210
  15. AZATHIOPRINE. [Concomitant]
     Active Substance: AZATHIOPRINE
     Dosage: 450 MG, DAILY
     Route: 048
     Dates: start: 20190123
  16. AZATHIOPRINE. [Concomitant]
     Active Substance: AZATHIOPRINE
     Dosage: 50 MG, 1X/DAY, THEN INCREASING DOSE TO 100MG OD IN TWO WEEKS
     Route: 048
  17. INFLECTRA [Suspect]
     Active Substance: INFLIXIMAB-DYYB
     Dosage: 325 MG, EVERY 0-1-5 WEEKS
     Route: 042
     Dates: start: 20181219
  18. PREDNISONE. [Concomitant]
     Active Substance: PREDNISONE
     Dosage: 40 MG, DAILY, THEN TAPERING DOWN
     Route: 048
     Dates: start: 20181028
  19. CIPROFLOXACIN. [Concomitant]
     Active Substance: CIPROFLOXACIN
     Dosage: 400 MG, 2X/DAY (Q12 HOURS)
     Route: 042
  20. INFLECTRA [Suspect]
     Active Substance: INFLIXIMAB-DYYB
     Dosage: 400 MG, EVERY 4 WEEKS
     Route: 042
     Dates: start: 20190422
  21. PREDNISONE. [Concomitant]
     Active Substance: PREDNISONE
     Dosage: 25 MG, 1X/DAY TAPERING 5 MG WEEKLY
     Route: 048
     Dates: start: 20181028

REACTIONS (17)
  - Off label use [Unknown]
  - Malaise [Unknown]
  - Musculoskeletal chest pain [Unknown]
  - Infusion related reaction [Unknown]
  - Myalgia [Not Recovered/Not Resolved]
  - Product use issue [Unknown]
  - Restless legs syndrome [Not Recovered/Not Resolved]
  - Arthralgia [Unknown]
  - Condition aggravated [Not Recovered/Not Resolved]
  - Cough [Unknown]
  - Arthritis [Unknown]
  - Drug level above therapeutic [Not Recovered/Not Resolved]
  - Therapeutic response shortened [Unknown]
  - Sensitivity to weather change [Unknown]
  - Arthralgia [Not Recovered/Not Resolved]
  - Off label use [Unknown]
  - Muscle rigidity [Not Recovered/Not Resolved]

NARRATIVE: CASE EVENT DATE: 20181212
